FAERS Safety Report 12951030 (Version 1)
Quarter: 2016Q4

REPORT INFORMATION
  Report Type: Spontaneous
  Country: US (occurrence: US)
  Receive Date: 20161117
  Receipt Date: 20161117
  Transmission Date: 20170207
  Serious: No
  Sender: FDA-Public Use
  Company Number: US-SHIRE-US201617389

PATIENT
  Sex: Female

DRUGS (1)
  1. XIIDRA [Suspect]
     Active Substance: LIFITEGRAST
     Indication: PRODUCT USED FOR UNKNOWN INDICATION
     Dosage: UNK, UNKNOWN
     Route: 047
     Dates: start: 20160926

REACTIONS (4)
  - Drug dose omission [Unknown]
  - Eye pain [Unknown]
  - Instillation site pain [Unknown]
  - Eye irritation [Unknown]

NARRATIVE: CASE EVENT DATE: 2016
